FAERS Safety Report 8889200 (Version 1)
Quarter: 2012Q4

REPORT INFORMATION
  Report Type: 
  Country: CA (occurrence: CA)
  Receive Date: 20121106
  Receipt Date: 20121106
  Transmission Date: 20130627
  Serious: Yes (Life-Threatening, Hospitalization, Other)
  Sender: FDA-Public Use
  Company Number: CA-CELGENEUS-028-21880-12103849

PATIENT
  Age: 78 Year
  Sex: Female

DRUGS (4)
  1. REVLIMID [Suspect]
     Indication: DRUG USE FOR UNKNOWN INDICATION
     Dosage: 25 Milligram
     Route: 048
  2. ANCEF [Suspect]
     Indication: DRUG USE FOR UNKNOWN INDICATION
     Route: 030
  3. TOBI [Suspect]
     Indication: DRUG USE FOR UNKNOWN INDICATION
     Route: 041
  4. VELCADE [Concomitant]
     Indication: DRUG USE FOR UNKNOWN INDICATION
     Route: 041

REACTIONS (12)
  - Angioedema [Unknown]
  - Dermatitis bullous [Unknown]
  - Dermatitis exfoliative [Unknown]
  - Febrile neutropenia [Unknown]
  - Feeling hot [Unknown]
  - Hypotension [Unknown]
  - Immunodeficiency [Unknown]
  - Lip swelling [Unknown]
  - Neuropathy peripheral [Unknown]
  - Prurigo [Unknown]
  - Rash maculo-papular [Unknown]
  - Swollen tongue [Unknown]
